FAERS Safety Report 6270038-0 (Version None)
Quarter: 2009Q3

REPORT INFORMATION
  Report Type: 
  Country: None (occurrence: None)
  Receive Date: 20090716
  Receipt Date: 20090708
  Transmission Date: 20100115
  Serious: Yes (Other)
  Sender: FDA-Public Use
  Company Number: US-BAYER-200921739NA

PATIENT
  Age: 28 Year
  Sex: Female
  Weight: 60 kg

DRUGS (2)
  1. MIRENA [Suspect]
     Indication: CONTRACEPTION
     Route: 015
     Dates: start: 20090421
  2. MIRENA [Suspect]
     Route: 015
     Dates: start: 20090501

REACTIONS (2)
  - IUD MIGRATION [None]
  - MEDICAL DEVICE PAIN [None]
